FAERS Safety Report 10383884 (Version 1)
Quarter: 2014Q3

REPORT INFORMATION
  Report Type: Report from Study
  Country: US (occurrence: US)
  Receive Date: 20140814
  Receipt Date: 20140814
  Transmission Date: 20150326
  Serious: Yes (Hospitalization, Other)
  Sender: FDA-Public Use
  Company Number: US-JNJFOC-20140809074

PATIENT
  Age: 68 Year
  Sex: Female
  Weight: 104.33 kg

DRUGS (2)
  1. REMICADE [Suspect]
     Active Substance: INFLIXIMAB
     Indication: ARTHRITIS
     Route: 042
     Dates: start: 201407, end: 201407
  2. REMICADE [Suspect]
     Active Substance: INFLIXIMAB
     Indication: ARTHRITIS
     Route: 042

REACTIONS (6)
  - Oral herpes [Unknown]
  - Body height decreased [Not Recovered/Not Resolved]
  - Sepsis [Unknown]
  - Diabetes mellitus [Not Recovered/Not Resolved]
  - Renal failure [Recovered/Resolved]
  - Clostridium difficile infection [Unknown]

NARRATIVE: CASE EVENT DATE: 201407
